FAERS Safety Report 9893634 (Version 1)
Quarter: 2014Q1

REPORT INFORMATION
  Report Type: Spontaneous
  Country: US (occurrence: US)
  Receive Date: 20140213
  Receipt Date: 20140213
  Transmission Date: 20141002
  Serious: Yes (Other)
  Sender: FDA-Public Use
  Company Number: US-ASTRAZENECA-2014SE09213

PATIENT
  Age: 66 Year
  Sex: Male
  Weight: 79.4 kg

DRUGS (22)
  1. ATENOLOL [Suspect]
     Indication: BLOOD PRESSURE ABNORMAL
     Route: 048
     Dates: start: 2008
  2. NEXIUM [Suspect]
     Indication: GASTROOESOPHAGEAL REFLUX DISEASE
     Route: 048
     Dates: start: 2007, end: 201312
  3. NEXIUM [Suspect]
     Indication: GASTROOESOPHAGEAL REFLUX DISEASE
     Route: 048
     Dates: start: 20140129
  4. DOXAZOSIN [Concomitant]
     Indication: PROSTATIC DISORDER
     Route: 048
     Dates: start: 2008
  5. DOXAZOSIN [Concomitant]
     Indication: HYPERTENSION
     Route: 048
     Dates: start: 2008
  6. SULFASALAZINE [Concomitant]
     Indication: COLITIS ULCERATIVE
     Route: 048
     Dates: start: 1983
  7. CITRACAL VITAMIN D AND CALCIUM [Concomitant]
     Indication: BONE LOSS
     Dosage: 500IU/630MG DAILY
     Route: 048
     Dates: start: 2011
  8. VITAMIN D3 [Concomitant]
     Indication: BONE LOSS
     Route: 048
     Dates: start: 2011
  9. CENTRUM SILVER [Concomitant]
     Indication: VITAMIN SUPPLEMENTATION
     Dosage: 1 TAB DAILY
     Route: 048
  10. ESTER C AND VITAMIN D [Concomitant]
     Indication: SUPPLEMENTATION THERAPY
     Dosage: 500MG-55MG DAILY
     Route: 048
  11. GLUCOSAMINE CHONDROITIN MSM [Concomitant]
     Indication: ARTHROPATHY
     Dosage: 1 CAP - 1500MG/800MG DAILY
     Route: 048
  12. FOLIC ACID [Concomitant]
     Indication: PROPHYLAXIS
     Route: 048
  13. CO-Q10 [Concomitant]
     Indication: CARDIAC DISORDER
     Route: 048
  14. OCCUVIT [Concomitant]
     Indication: EYE LUBRICATION THERAPY
     Dosage: 1 CAP DAILY
     Route: 048
  15. PROSTATE HEALTH COMPLEX PALMETTO AND ZINC [Concomitant]
     Indication: HYPERTENSION
     Route: 048
  16. ASPIRIN [Concomitant]
     Indication: RETINAL VEIN OCCLUSION
     Route: 048
  17. MELATONIN [Concomitant]
     Indication: GASTROOESOPHAGEAL REFLUX DISEASE
     Dosage: UNKNOWN HS
     Route: 048
     Dates: start: 20140115
  18. GAVISCON [Concomitant]
     Indication: GASTROOESOPHAGEAL REFLUX DISEASE
  19. CARAFATE [Concomitant]
     Indication: GASTROOESOPHAGEAL REFLUX DISEASE
  20. ANTACID [Concomitant]
     Indication: TONGUE GEOGRAPHIC
  21. ANTIHISTAMINE [Concomitant]
     Indication: TONGUE GEOGRAPHIC
     Dosage: MOUTH WASH
  22. COUMADIN [Concomitant]

REACTIONS (14)
  - Retinal vein occlusion [Recovered/Resolved]
  - Blindness [Unknown]
  - Melanoma recurrent [Unknown]
  - Vision blurred [Unknown]
  - Tongue geographic [Not Recovered/Not Resolved]
  - Hiatus hernia [Not Recovered/Not Resolved]
  - Bone loss [Not Recovered/Not Resolved]
  - Glossodynia [Not Recovered/Not Resolved]
  - Dysuria [Unknown]
  - Prostatic disorder [Unknown]
  - Gastrooesophageal reflux disease [Not Recovered/Not Resolved]
  - Drug dose omission [Unknown]
  - Off label use [Recovered/Resolved]
  - Intentional drug misuse [Not Recovered/Not Resolved]
